FAERS Safety Report 7199221-7 (Version None)
Quarter: 2010Q4

REPORT INFORMATION
  Report Type: 
  Country: None (occurrence: None)
  Receive Date: 20101228
  Receipt Date: 20101222
  Transmission Date: 20110411
  Serious: Yes (Death)
  Sender: FDA-Public Use
  Company Number: JP-ASTELLAS-2010JP007582

PATIENT
  Age: 41 Year
  Sex: Female

DRUGS (6)
  1. PROGRAF [Suspect]
     Indication: IMMUNOSUPPRESSION
     Route: 065
  2. METHOTREXATE [Concomitant]
     Indication: IMMUNOSUPPRESSION
     Route: 065
  3. BORTEZOMIB [Concomitant]
     Route: 065
  4. DEXAMETHASONE [Concomitant]
     Dosage: 20 MG, UNKNOWN/D
     Route: 065
  5. PREDNISOLONE [Concomitant]
     Dosage: 5 MG, UNKNOWN/D
     Route: 065
  6. CORTICOSTEROIDS [Concomitant]
     Route: 055

REACTIONS (1)
  - PNEUMONIA BACTERIAL [None]
